FAERS Safety Report 10395801 (Version 1)
Quarter: 2014Q1

REPORT INFORMATION
  Report Type: Spontaneous
  Country: US (occurrence: None)
  Receive Date: 20130107
  Receipt Date: 20130107
  Transmission Date: 20141002
  Serious: Yes (Other)
  Sender: FDA-Public Use
  Company Number: PHHY2012US072923

PATIENT
  Age: 40 Year
  Sex: Female
  Weight: 60 kg

DRUGS (3)
  1. GILENYA (FTY) CAPSULE, 0.5MG [Suspect]
     Indication: MULTIPLE SCLEROSIS
     Route: 048
     Dates: start: 201112, end: 20120820
  2. LEXAPRO (ESCITALOPRAM OXALATE) [Concomitant]
  3. GABAPENTIN (GABAPENTIN) [Concomitant]

REACTIONS (3)
  - Macular oedema [None]
  - Vision blurred [None]
  - Visual impairment [None]
